FAERS Safety Report 26117637 (Version 1)
Quarter: 2025Q4

REPORT INFORMATION
  Report Type: Spontaneous
  Country: US (occurrence: US)
  Receive Date: 20251203
  Receipt Date: 20251203
  Transmission Date: 20260117
  Serious: No
  Sender: ELI LILLY AND COMPANY
  Company Number: US-ELI_LILLY_AND_COMPANY-US202511027511

PATIENT
  Age: 36 Year
  Sex: Female

DRUGS (1)
  1. ZEPBOUND [Suspect]
     Active Substance: TIRZEPATIDE
     Indication: Weight control
     Dosage: 2.5 MG, UNKNOWN
     Route: 058
     Dates: end: 20251111

REACTIONS (6)
  - Nightmare [Recovering/Resolving]
  - Dehydration [Unknown]
  - Sleep disorder due to a general medical condition [Recovering/Resolving]
  - Brain fog [Recovering/Resolving]
  - Abnormal dreams [Recovering/Resolving]
  - Fatigue [Recovering/Resolving]
